FAERS Safety Report 12194020 (Version 1)
Quarter: 2016Q1

REPORT INFORMATION
  Report Type: Spontaneous
  Country: GB (occurrence: GB)
  Receive Date: 20160321
  Receipt Date: 20160321
  Transmission Date: 20160526
  Serious: Yes (Hospitalization)
  Sender: FDA-Public Use
  Company Number: GB-TEVA-644284ACC

PATIENT
  Age: 75 Year
  Sex: Female

DRUGS (15)
  1. HYPROMELLOSE [Concomitant]
     Active Substance: HYPROMELLOSES
  2. COCODAMOL [Concomitant]
     Active Substance: ACETAMINOPHEN\CODEINE PHOSPHATE
  3. DERMOL [Concomitant]
     Active Substance: BENZALKONIUM CHLORIDE\CHLORHEXIDINE HYDROCHLORIDE\ISOPROPYL MYRISTATE\PARAFFIN
  4. ENALAPRIL [Concomitant]
     Active Substance: ENALAPRIL
  5. CALCICHEW D3 FORTE [Concomitant]
     Active Substance: CALCIUM\CHOLECALCIFEROL
  6. METFORMIN [Concomitant]
     Active Substance: METFORMIN HYDROCHLORIDE
  7. SITAGLIPTIN [Concomitant]
     Active Substance: SITAGLIPTIN
  8. TERBUTALINE [Concomitant]
     Active Substance: TERBUTALINE
  9. ATORVASTATIN [Concomitant]
     Active Substance: ATORVASTATIN
  10. GAVISCON [Concomitant]
     Active Substance: ALUMINUM HYDROXIDE\MAGNESIUM CARBONATE
  11. LANSOPRAZOLE. [Concomitant]
     Active Substance: LANSOPRAZOLE
  12. DOXAZOSIN [Concomitant]
     Active Substance: DOXAZOSIN\DOXAZOSIN MESYLATE
  13. FELODIPINE. [Concomitant]
     Active Substance: FELODIPINE
  14. LORATADINE. [Suspect]
     Active Substance: LORATADINE
     Indication: DERMATITIS ALLERGIC
     Dosage: 10 MILLIGRAM DAILY;
     Route: 048
     Dates: end: 20160219
  15. BUDESONIDE. [Concomitant]
     Active Substance: BUDESONIDE

REACTIONS (5)
  - Syncope [Unknown]
  - Dizziness [Unknown]
  - Electrocardiogram QT prolonged [Unknown]
  - Bradycardia [Not Recovered/Not Resolved]
  - Cardiac arrest [Unknown]

NARRATIVE: CASE EVENT DATE: 20160201
